FAERS Safety Report 24180136 (Version 1)
Quarter: 2024Q3

REPORT INFORMATION
  Report Type: Spontaneous
  Country: US (occurrence: US)
  Receive Date: 20240806
  Receipt Date: 20240806
  Transmission Date: 20241017
  Serious: No
  Sender: Tarsus Pharmaceuticals
  Company Number: US-TARSUS PHARMACEUTICALS-TSP-US-2024-000171

PATIENT
  Age: 82 Year
  Sex: Female

DRUGS (15)
  1. XDEMVY [Suspect]
     Active Substance: LOTILANER
     Indication: Demodex blepharitis
     Dosage: 1 DROP, BID (IN BOTH EYES)
     Route: 047
     Dates: start: 202404, end: 20240424
  2. OMEPRAZOLE [Concomitant]
     Active Substance: OMEPRAZOLE
     Indication: Gastrooesophageal reflux disease
     Dosage: 20 MILLIGRAM, BID
     Route: 065
     Dates: start: 2006
  3. HYDROCHLOROTHIAZIDE [Concomitant]
     Active Substance: HYDROCHLOROTHIAZIDE
     Indication: Hypertension
     Dosage: 25 MILLIGRAM, QD
     Route: 065
  4. MINERALS\VITAMINS [Concomitant]
     Active Substance: MINERALS\VITAMINS
     Indication: Hypovitaminosis
     Dosage: UNK
     Route: 065
  5. CHOLECALCIFEROL [Concomitant]
     Active Substance: CHOLECALCIFEROL
     Indication: Bone disorder
     Dosage: 1600 INTERNATIONAL UNIT, BID
     Route: 065
  6. VITAMIN K [Concomitant]
     Active Substance: PHYTONADIONE
     Indication: Bone disorder
     Dosage: 26000 MICROGRAM, QD
     Route: 065
  7. FISH OIL [Concomitant]
     Active Substance: FISH OIL
     Indication: Eye disorder
     Dosage: 12000 GRAM, BID
     Route: 065
  8. FISH OIL [Concomitant]
     Active Substance: FISH OIL
     Indication: Cardiac disorder
  9. SIMETHICONE (DIMETHICONE) [Concomitant]
     Active Substance: DIMETHICONE
     Indication: Abdominal distension
     Dosage: 80 MILLIGRAM, QD (ONCE IN A WHILE)
     Route: 065
  10. REFRESH PLUS [Concomitant]
     Active Substance: CARBOXYMETHYLCELLULOSE SODIUM
     Indication: Dry eye
     Dosage: 1 DROP, QID
     Route: 065
  11. REFRESH LIQUIGEL [Concomitant]
     Active Substance: CARBOXYMETHYLCELLULOSE SODIUM
     Indication: Dry eye
     Dosage: 1 DROP, QD (NIGHT ONLY)
     Route: 065
  12. PSYLLIUM [Concomitant]
     Active Substance: PLANTAGO SEED
     Indication: Abdominal discomfort
     Dosage: UNK (2 TEASPOONS)
     Route: 065
  13. MYLANTA [Concomitant]
     Active Substance: ALUMINUM HYDROXIDE\DIMETHICONE\MAGNESIUM HYDROXIDE
     Indication: Gastrooesophageal reflux disease
     Dosage: UNK, PRN
     Route: 065
  14. AFRIN [Concomitant]
     Active Substance: OXYMETAZOLINE
     Indication: Nasal congestion
     Dosage: UNK
     Route: 065
  15. GABAPENTIN [Concomitant]
     Active Substance: GABAPENTIN
     Indication: Insomnia
     Dosage: UNK (10 TO 20 MG THREE TO FOUR TIMES IN MONTH)
     Route: 065

REACTIONS (3)
  - Rash [Recovering/Resolving]
  - Pruritus [Recovered/Resolved]
  - Accidental exposure to product [Unknown]

NARRATIVE: CASE EVENT DATE: 20240424
